FAERS Safety Report 21349557 (Version 1)
Quarter: 2022Q3

REPORT INFORMATION
  Report Type: Spontaneous
  Country: US (occurrence: None)
  Receive Date: 20220916
  Receipt Date: 20220916
  Transmission Date: 20221027
  Serious: Yes (Other)
  Sender: FDA-Public Use
  Company Number: None

PATIENT
  Age: 61 Year
  Sex: Female

DRUGS (1)
  1. ESTRADIOL [Suspect]
     Active Substance: ESTRADIOL
     Dates: start: 20210701

REACTIONS (5)
  - Incorrect dose administered by device [None]
  - Overdose [None]
  - Product complaint [None]
  - Product design issue [None]
  - Therapy interrupted [None]

NARRATIVE: CASE EVENT DATE: 20220916
